FAERS Safety Report 8912847 (Version 1)
Quarter: 2012Q4

REPORT INFORMATION
  Report Type: 
  Country: FR (occurrence: FR)
  Receive Date: 20121116
  Receipt Date: 20121116
  Transmission Date: 20130627
  Serious: Yes (Life-Threatening, Hospitalization)
  Sender: FDA-Public Use
  Company Number: FR-ASTRAZENECA-2012SE86005

PATIENT
  Sex: Female

DRUGS (4)
  1. DIPRIVAN [Suspect]
     Indication: ANAESTHESIA
     Route: 042
     Dates: start: 20121012, end: 20121012
  2. ATRACURIUM [Suspect]
     Indication: ANAESTHESIA
     Route: 042
     Dates: start: 20121012, end: 20121012
  3. HYPNOVEL [Suspect]
     Indication: ANAESTHESIA
     Route: 042
     Dates: start: 20121012, end: 20121012
  4. SUFENTA [Suspect]
     Indication: ANAESTHESIA
     Route: 042
     Dates: start: 20121012, end: 20121012

REACTIONS (1)
  - Anaphylactic shock [Recovered/Resolved]
